FAERS Safety Report 14546790 (Version 5)
Quarter: 2018Q2

REPORT INFORMATION
  Report Type: Report from Study
  Country: US (occurrence: US)
  Receive Date: 20180219
  Receipt Date: 20180629
  Transmission Date: 20180711
  Serious: Yes (Hospitalization)
  Sender: FDA-Public Use
  Company Number: US-GILEAD-2018-0320215

PATIENT
  Age: 56 Year
  Sex: Female

DRUGS (13)
  1. GABAPENTIN. [Concomitant]
     Active Substance: GABAPENTIN
  2. VERAPAMIL [Concomitant]
     Active Substance: VERAPAMIL HYDROCHLORIDE
  3. NOVOLOG [Concomitant]
     Active Substance: INSULIN ASPART
  4. AMBRISENTAN [Suspect]
     Active Substance: AMBRISENTAN
     Indication: PULMONARY HYPERTENSION
     Dosage: 10 MG, QD
     Route: 065
     Dates: start: 20170126
  5. METOLAZONE. [Concomitant]
     Active Substance: METOLAZONE
  6. TRESIBA [Concomitant]
     Active Substance: INSULIN DEGLUDEC
  7. FLOVENT [Concomitant]
     Active Substance: FLUTICASONE PROPIONATE
  8. HYZAAR [Concomitant]
     Active Substance: HYDROCHLOROTHIAZIDE\LOSARTAN POTASSIUM
  9. PROPAFENONE. [Concomitant]
     Active Substance: PROPAFENONE
  10. ADCIRCA [Concomitant]
     Active Substance: TADALAFIL
  11. LANTUS [Concomitant]
     Active Substance: INSULIN GLARGINE
  12. METFORMIN [Concomitant]
     Active Substance: METFORMIN HYDROCHLORIDE
  13. TYLENOL [Concomitant]
     Active Substance: ACETAMINOPHEN

REACTIONS (10)
  - Fall [Unknown]
  - Immobile [Unknown]
  - Drug dose omission [Unknown]
  - Ligament sprain [Recovering/Resolving]
  - Intentional product use issue [Unknown]
  - Accident [Not Recovered/Not Resolved]
  - Ligament sprain [Unknown]
  - Neuropathy peripheral [Not Recovered/Not Resolved]
  - Asthma [Not Recovered/Not Resolved]
  - Dyspnoea [Unknown]

NARRATIVE: CASE EVENT DATE: 20170202
